FAERS Safety Report 24981639 (Version 1)
Quarter: 2025Q1

REPORT INFORMATION
  Report Type: Spontaneous
  Country: US (occurrence: None)
  Receive Date: 20250217
  Receipt Date: 20250217
  Transmission Date: 20250409
  Serious: Yes (Disabling, Other)
  Sender: FDA-CTU
  Company Number: None

PATIENT
  Age: 36 Year
  Sex: Male
  Weight: 107.1 kg

DRUGS (20)
  1. RISPERIDONE [Suspect]
     Active Substance: RISPERIDONE
     Indication: Depression
     Dosage: FREQUENCY : TWICE A DAY;?
     Route: 048
     Dates: start: 20250128, end: 20250217
  2. UNSPECIFIED INGREDIENT [Concomitant]
     Active Substance: UNSPECIFIED INGREDIENT
  3. MULTI-VITAMIN [Concomitant]
     Active Substance: .ALPHA.-TOCOPHEROL ACETATE, DL-\ASCORBIC ACID\CYANOCOBALAMIN\FLUORIDE ION\FOLIC ACID\NIACIN\PYRIDOXI
  4. TEA [Concomitant]
     Active Substance: TEA LEAF
  5. NICOTINE [Concomitant]
     Active Substance: NICOTINE
  6. CAYENNE PEPPER [Concomitant]
     Active Substance: CAPSICUM
  7. TEA LEAF [Concomitant]
     Active Substance: TEA LEAF
  8. Ginko Biloba extract [Concomitant]
  9. GARLIC [Concomitant]
     Active Substance: GARLIC
  10. ACETAMINOPHEN [Concomitant]
     Active Substance: ACETAMINOPHEN
  11. CAFFEINE [Concomitant]
     Active Substance: CAFFEINE
  12. SLIPPERY ELM BARK [Concomitant]
  13. Ginger powder [Concomitant]
  14. Acai extract [Concomitant]
  15. Blueberry powder [Concomitant]
  16. Cranberry powder (fruit) milk Thistle extract [Concomitant]
  17. Litchi extract [Concomitant]
  18. Mangosteen powder [Concomitant]
  19. Pomegranate powder [Concomitant]
  20. Cascara Sagrada powder also known as ACAI BERRY CLEANSE [Concomitant]

REACTIONS (9)
  - Weight increased [None]
  - Appetite disorder [None]
  - Headache [None]
  - Dizziness [None]
  - Respiration abnormal [None]
  - Confusional state [None]
  - Somnolence [None]
  - Anxiety [None]
  - Disturbance in attention [None]

NARRATIVE: CASE EVENT DATE: 20250202
